FAERS Safety Report 5344247-9 (Version None)
Quarter: 2007Q2

REPORT INFORMATION
  Report Type: 
  Country: None (occurrence: None)
  Receive Date: 20070604
  Receipt Date: 20070524
  Transmission Date: 20071010
  Serious: Yes (Disabling, Other)
  Sender: FDA-Public Use
  Company Number: US-ROCHE-430213

PATIENT
  Age: 16 Year
  Sex: Male
  Weight: 88.9 kg

DRUGS (2)
  1. ACCUTANE [Suspect]
     Indication: ACNE
     Route: 048
     Dates: start: 19870101, end: 19880101
  2. ANTIBIOTICS NOS [Concomitant]

REACTIONS (7)
  - ARTERIAL RESTENOSIS [None]
  - COAGULOPATHY [None]
  - COLITIS ULCERATIVE [None]
  - CROHN'S DISEASE [None]
  - DEPRESSION [None]
  - HYPERTENSION [None]
  - INFLAMMATORY BOWEL DISEASE [None]
